FAERS Safety Report 8256867-2 (Version None)
Quarter: 2012Q2

REPORT INFORMATION
  Report Type: 
  Country: None (occurrence: None)
  Receive Date: 20120403
  Receipt Date: 20120329
  Transmission Date: 20120825
  Serious: Yes (Other)
  Sender: FDA-Public Use
  Company Number: JP-PFIZER INC-2011267809

PATIENT
  Age: 70 Year
  Sex: Male
  Weight: 67 kg

DRUGS (6)
  1. GLIMEPIRIDE [Concomitant]
     Dosage: UNK
     Route: 048
  2. LYRICA [Suspect]
     Indication: POST HERPETIC NEURALGIA
     Dosage: 75 MG, 3X/DAY
     Route: 048
     Dates: start: 20110706, end: 20110912
  3. METFORMIN HCL [Concomitant]
     Dosage: UNK
     Route: 048
  4. METHYCOBAL [Concomitant]
     Dosage: UNK
     Route: 048
  5. NIFEDIPINE [Concomitant]
     Dosage: UNK
     Route: 048
  6. LYRICA [Suspect]
     Dosage: 75 MG, 4X/DAY
     Route: 048
     Dates: start: 20110913, end: 20111014

REACTIONS (1)
  - GENERALISED OEDEMA [None]
